FAERS Safety Report 9557179 (Version 2)
Quarter: 2013Q4

REPORT INFORMATION
  Report Type: Spontaneous
  Country: JP (occurrence: JP)
  Receive Date: 20130926
  Receipt Date: 20131003
  Transmission Date: 20140711
  Serious: Yes (Hospitalization)
  Sender: FDA-Public Use
  Company Number: JP-ALLERGAN-1314581US

PATIENT
  Age: 31 Year
  Sex: Female

DRUGS (1)
  1. BOTOX [Suspect]
     Indication: OFF LABEL USE
     Dosage: 100 UNITS, SINGLE
     Route: 030
     Dates: start: 20130831, end: 20130831

REACTIONS (4)
  - White blood cell count decreased [Not Recovered/Not Resolved]
  - Platelet count decreased [Not Recovered/Not Resolved]
  - Pyrexia [Recovered/Resolved]
  - Off label use [Unknown]
